FAERS Safety Report 4526134-9 (Version None)
Quarter: 2004Q4

REPORT INFORMATION
  Report Type: 
  Country: None (occurrence: None)
  Receive Date: 20041213
  Receipt Date: 20041213
  Transmission Date: 20050328
  Serious: Yes (Hospitalization, Disabling, Other)
  Sender: FDA-Public Use
  Company Number: None

PATIENT
  Age: 54 Year
  Sex: Male
  Weight: 92.5338 kg

DRUGS (1)
  1. CORICIDIN D SRT [Suspect]
     Indication: NASOPHARYNGITIS
     Dosage: 2 TABS/2 DOSE ORAL
     Route: 048
     Dates: start: 19971229, end: 19971231

REACTIONS (7)
  - ABASIA [None]
  - AMNESIA [None]
  - DYSGRAPHIA [None]
  - HEMIPLEGIA [None]
  - INTRACRANIAL PRESSURE INCREASED [None]
  - NAUSEA [None]
  - VOMITING [None]
